FAERS Safety Report 18267451 (Version 3)
Quarter: 2020Q3

REPORT INFORMATION
  Report Type: Spontaneous
  Country: TH (occurrence: TH)
  Receive Date: 20200915
  Receipt Date: 20200929
  Transmission Date: 20201103
  Serious: Yes (Other)
  Sender: FDA-Public Use
  Company Number: TH-ALVOGEN-2020-ALVOGEN-114001

PATIENT
  Age: 16 Year
  Sex: Female
  Weight: 32.5 kg

DRUGS (5)
  1. CISATRACURIUM. [Suspect]
     Active Substance: CISATRACURIUM
     Indication: INDUCTION OF ANAESTHESIA
  2. PROPOFOL. [Suspect]
     Active Substance: PROPOFOL
     Indication: INDUCTION OF ANAESTHESIA
  3. NITROUS OXIDE. [Suspect]
     Active Substance: NITROUS OXIDE
     Indication: INDUCTION OF ANAESTHESIA
  4. FENTANYL. [Suspect]
     Active Substance: FENTANYL
     Indication: INDUCTION OF ANAESTHESIA
  5. DESFLURANE. [Suspect]
     Active Substance: DESFLURANE
     Indication: INDUCTION OF ANAESTHESIA

REACTIONS (1)
  - Hyperthermia malignant [Recovered/Resolved]
